FAERS Safety Report 7491941-X (Version None)
Quarter: 2011Q2

REPORT INFORMATION
  Report Type: 
  Country: None (occurrence: None)
  Receive Date: 20110519
  Receipt Date: 20110516
  Transmission Date: 20111010
  Serious: Yes (Death)
  Sender: FDA-Public Use
  Company Number: JP-SANOFI-AVENTIS-2011SA029736

PATIENT
  Age: 70 Year
  Sex: Female

DRUGS (6)
  1. FERROUS CITRATE [Concomitant]
     Dates: start: 20100915, end: 20110508
  2. HERBAL PREPARATION [Concomitant]
     Dates: start: 20101207, end: 20110508
  3. ADALAT CC [Concomitant]
     Dates: start: 20110208, end: 20110508
  4. HYDROCHLOROTHIAZIDE/LOSARTAN POTASSIUM [Concomitant]
     Dates: start: 20110107, end: 20110508
  5. MECOBALAMIN [Concomitant]
     Dates: start: 20100915, end: 20110508
  6. APIDRA [Suspect]
     Indication: DIABETES MELLITUS
     Route: 058
     Dates: start: 20110208, end: 20110508

REACTIONS (2)
  - MYOCARDIAL INFARCTION [None]
  - CARDIAC FAILURE ACUTE [None]
